FAERS Safety Report 5463864-9 (Version None)
Quarter: 2007Q3

REPORT INFORMATION
  Report Type: 
  Country: None (occurrence: None)
  Receive Date: 20070817
  Receipt Date: 20060629
  Transmission Date: 20080115
  Serious: Yes (Hospitalization)
  Sender: FDA-Public Use
  Company Number: 14310

PATIENT
  Age: 71 Year
  Sex: Female

DRUGS (10)
  1. FLUOROURACIL [Suspect]
     Indication: COLORECTAL CANCER
     Dosage: MG FORTNIGHTLY IV
     Route: 042
     Dates: start: 20050606, end: 20050606
  2. FLUOROURACIL [Suspect]
     Indication: COLORECTAL CANCER
     Dosage: 800 MG PU
     Dates: start: 20050621, end: 20050621
  3. FLUOROURACIL [Suspect]
     Indication: COLORECTAL CANCER
     Dosage: 4800 MG OTH
     Route: 050
     Dates: start: 20050621, end: 20050622
  4. LEUCOVORIN [Suspect]
     Indication: COLORECTAL CANCER
     Dosage: 800 MG FORTNIGHTLY IV
     Route: 042
     Dates: start: 20050606, end: 20050606
  5. LEUCOVORIN [Suspect]
     Indication: COLORECTAL CANCER
     Dosage: 800 MG OTH
     Route: 050
     Dates: start: 20050621, end: 20050621
  6. OXALIPLATIN [Suspect]
     Indication: COLORECTAL CANCER
     Dosage: 170 MG FORTNIGHTLY IV
     Route: 042
     Dates: start: 20050606, end: 20050606
  7. OXALIPLATIN [Suspect]
     Indication: COLORECTAL CANCER
     Dosage: 170 MG
     Dates: start: 20050621, end: 20050621
  8. CETUXIMAB [Suspect]
     Indication: COLORECTAL CANCER
     Dosage: 800 MG WEEKLY IV
     Route: 042
     Dates: start: 20050606, end: 20050606
  9. CETUXIMAB [Suspect]
     Indication: COLORECTAL CANCER
     Dosage: 500 MG
     Dates: start: 20050621, end: 20050621
  10. STUDY MEDICATION [Concomitant]

REACTIONS (1)
  - PYREXIA [None]
